FAERS Safety Report 6683132-7 (Version None)
Quarter: 2010Q2

REPORT INFORMATION
  Report Type: 
  Country: None (occurrence: None)
  Receive Date: 20100415
  Receipt Date: 20100413
  Transmission Date: 20101027
  Serious: Yes (Other)
  Sender: FDA-Public Use
  Company Number: CHPA2010US05818

PATIENT
  Age: 65 Year
  Sex: Male
  Weight: 83.9 kg

DRUGS (3)
  1. GAS-X EXTSTR CHEWABLE TABS CHERRY CREME (NCH) [Suspect]
     Indication: SENSATION OF PRESSURE
     Dosage: 250 MG, BID
     Route: 048
     Dates: start: 20100326, end: 20100328
  2. GAS-X EXTSTR CHEWABLE TABS CHERRY CREME (NCH) [Suspect]
     Indication: ABDOMINAL DISTENSION
  3. LISINOPRIL [Concomitant]
     Indication: HYPERTENSION
     Dosage: UNK, UNK
     Route: 048

REACTIONS (3)
  - HYPERSENSITIVITY [None]
  - LIP SWELLING [None]
  - OEDEMA MOUTH [None]
